FAERS Safety Report 8841647 (Version 1)
Quarter: 2012Q4

REPORT INFORMATION
  Report Type: 
  Country: US (occurrence: US)
  Receive Date: 20121015
  Receipt Date: 20121015
  Transmission Date: 20130627
  Serious: Yes (Hospitalization)
  Sender: FDA-Public Use
  Company Number: US-BAYER-2012-105447

PATIENT
  Age: 32 Year
  Sex: Female
  Weight: 82.54 kg

DRUGS (8)
  1. YAZ [Suspect]
  2. GIANVI [Suspect]
  3. ORTHO-CEPT [Concomitant]
     Indication: CONTRACEPTION
  4. ANTIFUNGALS [Concomitant]
  5. ASPIRIN [Concomitant]
     Indication: HEADACHE
     Dosage: 325 mg, BID
     Route: 048
     Dates: end: 20111127
  6. UNISOM [DIPHENHYDRAMINE HYDROCHLORIDE] [Concomitant]
     Indication: INSOMNIA
     Dosage: 1 every night at bedtime
     Route: 048
  7. IMITREX [Concomitant]
     Indication: HEADACHE
  8. ANTIEMETICS AND ANTINAUSEANTS [Concomitant]
     Indication: HEADACHE

REACTIONS (1)
  - Pulmonary embolism [None]
